FAERS Safety Report 9927968 (Version 1)
Quarter: 2014Q1

REPORT INFORMATION
  Report Type: Spontaneous
  Country: US (occurrence: US)
  Receive Date: 20140227
  Receipt Date: 20140227
  Transmission Date: 20141002
  Serious: No
  Sender: FDA-Public Use
  Company Number: US-PFIZER INC-2014054798

PATIENT
  Age: 81 Year
  Sex: Female
  Weight: 53.52 kg

DRUGS (4)
  1. TOVIAZ [Suspect]
     Indication: URINARY INCONTINENCE
     Dosage: 4 MG, 1X/DAY
     Route: 048
     Dates: start: 201309, end: 20140223
  2. ASPIRIN [Concomitant]
     Dosage: UNK, 1X/DAY
  3. RAMIPRIL [Concomitant]
     Dosage: UNK
  4. PRILOSEC [Concomitant]
     Dosage: UNK

REACTIONS (2)
  - Rash [Unknown]
  - Dizziness [Not Recovered/Not Resolved]
